FAERS Safety Report 16897225 (Version 2)
Quarter: 2019Q4

REPORT INFORMATION
  Report Type: Report from Study
  Country: FR (occurrence: FR)
  Receive Date: 20191009
  Receipt Date: 20191024
  Transmission Date: 20200122
  Serious: Yes (Hospitalization)
  Sender: FDA-Public Use
  Company Number: FR-OCTA-WIL03119FR

PATIENT
  Age: 12 Year
  Sex: Male

DRUGS (1)
  1. EQWILATE [Suspect]
     Active Substance: HUMAN COAGULATION FACTOR VIII/VON WILLEBRAND FACTOR COMPLEX
     Indication: VON WILLEBRAND^S DISEASE
     Route: 042
     Dates: start: 20190727

REACTIONS (1)
  - Catheter site infection [Not Recovered/Not Resolved]

NARRATIVE: CASE EVENT DATE: 2019
